FAERS Safety Report 10169819 (Version 2)
Quarter: 2014Q2

REPORT INFORMATION
  Report Type: Spontaneous
  Country: US (occurrence: US)
  Receive Date: 20140513
  Receipt Date: 20140618
  Transmission Date: 20141212
  Serious: Yes (Other)
  Sender: FDA-Public Use
  Company Number: US-PFIZER INC-2014130661

PATIENT
  Age: 59 Year
  Sex: Female
  Weight: 74 kg

DRUGS (4)
  1. LIPITOR [Suspect]
     Indication: LOW DENSITY LIPOPROTEIN INCREASED
     Dosage: 10 MG, 1X/DAY
     Route: 048
     Dates: start: 200403, end: 201309
  2. LIPITOR [Suspect]
     Indication: CARDIOVASCULAR EVENT PROPHYLAXIS
  3. SYNTHROID [Concomitant]
     Indication: THYROID DISORDER
     Dosage: 125 UG, DAILY
     Dates: start: 2008
  4. EVISTA [Concomitant]
     Indication: BLOOD OESTROGEN INCREASED
     Dosage: 60 MG, DAILY
     Dates: start: 2003

REACTIONS (1)
  - Type 2 diabetes mellitus [Not Recovered/Not Resolved]
